FAERS Safety Report 4485786-2 (Version None)
Quarter: 2004Q4

REPORT INFORMATION
  Report Type: 
  Country: None (occurrence: None)
  Receive Date: 20041026
  Receipt Date: 20041015
  Transmission Date: 20050328
  Serious: Yes (Hospitalization)
  Sender: FDA-Public Use
  Company Number: FR-ROCHE-383473

PATIENT
  Age: 69 Year
  Sex: Female
  Weight: 76 kg

DRUGS (12)
  1. ROCEPHIN [Suspect]
     Indication: URINARY TRACT INFECTION
     Route: 042
     Dates: start: 20040510, end: 20040510
  2. SKENAN [Concomitant]
  3. VITAMIN K1 [Concomitant]
     Route: 048
     Dates: start: 20040510, end: 20040510
  4. ARIMIDEX [Concomitant]
     Dates: start: 20040510
  5. LOVENOX [Concomitant]
  6. CALCIT [Concomitant]
  7. DOLIPRANE [Concomitant]
  8. MORPHINE SULFATE [Concomitant]
  9. STILNOX [Concomitant]
  10. FOLIC ACID [Concomitant]
  11. MOPRAL [Concomitant]
  12. XANAX [Concomitant]

REACTIONS (4)
  - ANGIONEUROTIC OEDEMA [None]
  - BLOOD PRESSURE SYSTOLIC INCREASED [None]
  - DYSPNOEA [None]
  - HEART RATE INCREASED [None]
